FAERS Safety Report 14019104 (Version 2)
Quarter: 2018Q2

REPORT INFORMATION
  Report Type: Spontaneous
  Country: IR (occurrence: IR)
  Receive Date: 20170928
  Receipt Date: 20180410
  Transmission Date: 20180711
  Serious: Yes (Other)
  Sender: FDA-Public Use
  Company Number: PHHY2017IR138595

PATIENT
  Age: 37 Year
  Sex: Female
  Weight: 65 kg

DRUGS (4)
  1. FORADIL [Suspect]
     Active Substance: FORMOTEROL FUMARATE
     Indication: NASOPHARYNGITIS
  2. FORADIL [Suspect]
     Active Substance: FORMOTEROL FUMARATE
     Indication: PNEUMONIA
     Dosage: UNK
     Route: 055
     Dates: start: 20170919
  3. FLOHALE [Concomitant]
     Indication: PNEUMONIA
     Dosage: UNK
     Route: 055
     Dates: start: 20170919
  4. FLOHALE [Concomitant]
     Indication: NASOPHARYNGITIS

REACTIONS (5)
  - Product use in unapproved indication [Unknown]
  - Cough [Recovered/Resolved]
  - Vomiting [Recovered/Resolved]
  - Maternal exposure during pregnancy [Unknown]
  - Tremor [Recovered/Resolved]

NARRATIVE: CASE EVENT DATE: 20170919
